FAERS Safety Report 6432708-0 (Version None)
Quarter: 2009Q4

REPORT INFORMATION
  Report Type: 
  Country: None (occurrence: None)
  Receive Date: 20091109
  Receipt Date: 20091102
  Transmission Date: 20100525
  Serious: Yes (Other)
  Sender: FDA-Public Use
  Company Number: AU-JNJFOC-20091101453

PATIENT
  Sex: Male
  Weight: 93 kg

DRUGS (1)
  1. RISPERIDONE CONSTA [Suspect]
     Indication: SCHIZOPHRENIA
     Route: 030

REACTIONS (1)
  - SUICIDAL IDEATION [None]
